FAERS Safety Report 25122155 (Version 1)
Quarter: 2025Q1

REPORT INFORMATION
  Report Type: Other
  Country: CA (occurrence: CA)
  Receive Date: 20250326
  Receipt Date: 20250326
  Transmission Date: 20250409
  Serious: No
  Sender: TOLMAR
  Company Number: CA-20250312-15b18d

PATIENT
  Sex: Male

DRUGS (2)
  1. ELIGARD [Suspect]
     Active Substance: LEUPROLIDE ACETATE
     Indication: Prostate cancer
     Dosage: 45 MILLIGRAMS, Q 6 MONTHS
     Route: 058
     Dates: start: 20220527
  2. ELIGARD [Suspect]
     Active Substance: LEUPROLIDE ACETATE
     Dosage: 45 MILLIGRAMS, Q 6 MONTHS
     Route: 058
     Dates: start: 20250312

REACTIONS (1)
  - Hot flush [Unknown]
